FAERS Safety Report 9924971 (Version 1)
Quarter: 2014Q1

REPORT INFORMATION
  Report Type: Spontaneous
  Country: NL (occurrence: None)
  Receive Date: 20140221
  Receipt Date: 20140221
  Transmission Date: 20141002
  Serious: Yes (Hospitalization)
  Sender: FDA-Public Use
  Company Number: B0970251A

PATIENT
  Age: 23 Year
  Sex: Male

DRUGS (3)
  1. MALARONE (FORMULATION UNKONWN) (ATOVAQUONE/PROQUANIL HCL) [Suspect]
     Indication: MALARIA
  2. CHLOROQUINE [Concomitant]
  3. MALARIA VACCINE [Concomitant]

REACTIONS (15)
  - Myocarditis [None]
  - Chills [None]
  - Headache [None]
  - Platelet count decreased [None]
  - Lymphocyte count decreased [None]
  - Fatigue [None]
  - Pericarditis [None]
  - Human rhinovirus test positive [None]
  - Aspartate aminotransferase increased [None]
  - Blood lactate dehydrogenase increased [None]
  - Troponin T increased [None]
  - Electrocardiogram ST segment [None]
  - Electrocardiogram QRS complex [None]
  - C-reactive protein increased [None]
  - Oedema [None]
